FAERS Safety Report 5694418-7 (Version None)
Quarter: 2008Q2

REPORT INFORMATION
  Report Type: 
  Country: None (occurrence: None)
  Receive Date: 20080403
  Receipt Date: 20080403
  Transmission Date: 20081010
  Serious: Yes (Death)
  Sender: FDA-Public Use
  Company Number: None

PATIENT
  Age: 74 Year
  Sex: Male
  Weight: 94.3482 kg

DRUGS (2)
  1. HALDOL [Suspect]
     Indication: AGITATION
     Dosage: 2MG Q4H PRN IV BOLUS
     Route: 040
     Dates: start: 20080128, end: 20080205
  2. AMIODARONE HCL [Suspect]
     Indication: ATRIAL FIBRILLATION
     Dosage: 200MG BID PO
     Route: 048
     Dates: start: 20080201, end: 20080205

REACTIONS (5)
  - BRADYCARDIA [None]
  - CEREBROVASCULAR ACCIDENT [None]
  - COMA [None]
  - DRUG INTERACTION [None]
  - ELECTROENCEPHALOGRAM ABNORMAL [None]
